FAERS Safety Report 7969737 (Version 4)
Quarter: 2013Q1

REPORT INFORMATION
  Report Type: Report from Study
  Country: DE (occurrence: DE)
  Receive Date: 20110601
  Receipt Date: 20130206
  Transmission Date: 20140127
  Serious: Yes (Hospitalization, Other)
  Sender: FDA-Public Use
  Company Number: DE-BRISTOL-MYERS SQUIBB COMPANY-15784895

PATIENT
  Age: 51 Year
  Sex: Female
  Weight: 80 kg

DRUGS (1)
  1. IPILIMUMAB [Suspect]
     Indication: MALIGNANT MELANOMA
     Dosage: 2ND DOSE: 13MAY2011
     Route: 042
     Dates: start: 20110424

REACTIONS (3)
  - Meningitis aseptic [Recovered/Resolved]
  - Delirium [Unknown]
  - Rash maculo-papular [Recovered/Resolved]
